FAERS Safety Report 13960868 (Version 3)
Quarter: 2019Q1

REPORT INFORMATION
  Report Type: Spontaneous
  Country: JP (occurrence: JP)
  Receive Date: 20170912
  Receipt Date: 20190307
  Transmission Date: 20190417
  Serious: Yes (Hospitalization, Other)
  Sender: FDA-Public Use
  Company Number: JP-BAYER-2017-168877

PATIENT
  Age: 74 Year
  Sex: Male
  Weight: 57.7 kg

DRUGS (6)
  1. DABIGATRAN ETEXILATE MESILATE [Concomitant]
     Active Substance: DABIGATRAN ETEXILATE MESYLATE
     Indication: ATRIAL FIBRILLATION
     Dosage: DAILY DOSE 2 DF
     Route: 048
     Dates: start: 20141104
  2. STIVARGA [Suspect]
     Active Substance: REGORAFENIB
     Indication: HEPATOCELLULAR CARCINOMA
     Dosage: 160MG DAILY
     Route: 048
     Dates: start: 20170815, end: 20180313
  3. PARIET [Concomitant]
     Active Substance: RABEPRAZOLE SODIUM
     Indication: GASTROOESOPHAGEAL REFLUX DISEASE
     Dosage: DAILY DOSE 1 DF
     Route: 048
     Dates: start: 20140704
  4. NEXAVAR [Suspect]
     Active Substance: SORAFENIB
     Indication: HEPATOCELLULAR CARCINOMA
     Dosage: 800MG DAILY
     Route: 048
     Dates: start: 20140618, end: 201610
  5. CANDESARTAN. [Concomitant]
     Active Substance: CANDESARTAN
     Indication: HYPERTENSION
     Dosage: DAILY DOSE 1 DF
     Route: 048
     Dates: start: 20140924
  6. GLIMEPIRIDE. [Concomitant]
     Active Substance: GLIMEPIRIDE
     Indication: DIABETES MELLITUS
     Dosage: DAILY DOSE 1 DF
     Route: 048
     Dates: start: 20170301

REACTIONS (2)
  - Atrial fibrillation [Recovering/Resolving]
  - Atrial fibrillation [None]

NARRATIVE: CASE EVENT DATE: 20170829
